FAERS Safety Report 4915546-7 (Version None)
Quarter: 2006Q1

REPORT INFORMATION
  Report Type: 
  Country: None (occurrence: None)
  Receive Date: 20060113
  Receipt Date: 20050926
  Transmission Date: 20060701
  Serious: No
  Sender: FDA-Public Use
  Company Number: 2005SP003195

PATIENT
  Age: 48 Year
  Sex: Male

DRUGS (4)
  1. LUNESTA [Suspect]
     Dosage: 0.5 MG;HS;ORAL
     Route: 048
     Dates: start: 20050924, end: 20050924
  2. SINGULAIR [Concomitant]
  3. PROVENTIL [Concomitant]
  4. NAUSEA MEDICATION UNSPECIFIED [Concomitant]

REACTIONS (6)
  - DIZZINESS [None]
  - DRUG INEFFECTIVE [None]
  - DYSGEUSIA [None]
  - INSOMNIA [None]
  - NIGHTMARE [None]
  - TREMOR [None]
